FAERS Safety Report 5944354-3 (Version None)
Quarter: 2008Q4

REPORT INFORMATION
  Report Type: 
  Country: None (occurrence: None)
  Receive Date: 20081107
  Receipt Date: 20081031
  Transmission Date: 20090506
  Serious: Yes (Other)
  Sender: FDA-Public Use
  Company Number: DE-RANBAXY-2008RR-19044

PATIENT
  Sex: Female

DRUGS (3)
  1. HYDROCHLOROTHIAZIDE [Suspect]
     Dosage: 25 MG
  2. MELLARIL [Suspect]
     Dosage: 100 MG UNK
  3. CARBAMAZEPINE [Suspect]
     Dosage: 400 MG

REACTIONS (1)
  - LONG QT SYNDROME [None]
